FAERS Safety Report 23615024 (Version 1)
Quarter: 2024Q1

REPORT INFORMATION
  Report Type: Spontaneous
  Country: TR (occurrence: TR)
  Receive Date: 20240311
  Receipt Date: 20240311
  Transmission Date: 20240410
  Serious: Yes (Other)
  Sender: FDA-Public Use
  Company Number: TR-JNJFOC-20240284574

PATIENT
  Age: 28 Year
  Sex: Male

DRUGS (6)
  1. BOSENTAN [Suspect]
     Active Substance: BOSENTAN
     Indication: Pulmonary arterial hypertension
     Route: 048
     Dates: start: 2019
  2. SILDENAFIL [Suspect]
     Active Substance: SILDENAFIL
     Indication: Product used for unknown indication
     Route: 065
     Dates: start: 2019
  3. ASPIRIN [Concomitant]
     Active Substance: ASPIRIN
  4. METOPROLOL [Concomitant]
     Active Substance: METOPROLOL
  5. PANTOPRAZOLE [Concomitant]
     Active Substance: PANTOPRAZOLE
  6. FUROSEMIDE [Concomitant]
     Active Substance: FUROSEMIDE

REACTIONS (1)
  - Oxygen saturation decreased [Unknown]
